FAERS Safety Report 21084902 (Version 1)
Quarter: 2022Q3

REPORT INFORMATION
  Report Type: Spontaneous
  Country: US (occurrence: US)
  Receive Date: 20220714
  Receipt Date: 20220714
  Transmission Date: 20221027
  Serious: No
  Sender: FDA-Public Use
  Company Number: US-SANOFI-01178552

PATIENT
  Sex: Female

DRUGS (1)
  1. DUPIXENT [Suspect]
     Active Substance: DUPILUMAB
     Indication: Dermatitis atopic
     Dosage: 300MG, QOW
     Dates: start: 20190926

REACTIONS (7)
  - Rash [Unknown]
  - Skin infection [Unknown]
  - Burning sensation [Unknown]
  - Swelling [Unknown]
  - Pain [Unknown]
  - Skin fissures [Unknown]
  - Product dose omission issue [Unknown]
